FAERS Safety Report 14127313 (Version 1)
Quarter: 2017Q4

REPORT INFORMATION
  Report Type: Report from Study
  Country: JP (occurrence: JP)
  Receive Date: 20171026
  Receipt Date: 20171026
  Transmission Date: 20180321
  Serious: Yes (Hospitalization)
  Sender: FDA-Public Use
  Company Number: JP-CONCORDIA PHARMACEUTICALS INC.-GSH201710-005926

PATIENT
  Age: 44 Year
  Sex: Female

DRUGS (2)
  1. PLAQUENIL [Suspect]
     Active Substance: HYDROXYCHLOROQUINE SULFATE
     Dosage: 1 TABLET DAILY AND 2 TABLETS DAILY ALTERNATIVELY
     Route: 065
  2. PLAQUENIL [Suspect]
     Active Substance: HYDROXYCHLOROQUINE SULFATE
     Indication: PRODUCT USED FOR UNKNOWN INDICATION
     Dosage: 1 TABLET DAILY AND 2 TABLETS DAILY ALTERNATIVELY
     Route: 065

REACTIONS (2)
  - Oedema mucosal [Unknown]
  - Erythema [Unknown]

NARRATIVE: CASE EVENT DATE: 20161012
